FAERS Safety Report 25894632 (Version 2)
Quarter: 2025Q4

REPORT INFORMATION
  Report Type: Report from Study
  Country: US (occurrence: US)
  Receive Date: 20251008
  Receipt Date: 20251112
  Transmission Date: 20260118
  Serious: No
  Sender: DECIPHERA PHARMACEUTICALS
  Company Number: US-DECIPHERA PHARMACEUTICALS LLC-2025US001226

PATIENT
  Age: 41 Year
  Sex: Female
  Weight: 83.887 kg

DRUGS (2)
  1. ROMVIMZA [Suspect]
     Active Substance: VIMSELTINIB
     Indication: Connective tissue neoplasm
     Dosage: 30 MILLIGRAM, TWICE WEEKLY (TOOK ON MONDAY AND FRIDAY)
     Dates: start: 20250514
  2. ROMVIMZA [Suspect]
     Active Substance: VIMSELTINIB
     Indication: Soft tissue neoplasm
     Dosage: 30 MILLIGRAM, TWICE WEEKLY, ,ONDAY AND FRIDAY

REACTIONS (6)
  - Blood pressure abnormal [Unknown]
  - Pain in extremity [Unknown]
  - Accident at work [Unknown]
  - Hypoaesthesia [Unknown]
  - Generalised oedema [Unknown]
  - Contrast media reaction [Unknown]

NARRATIVE: CASE EVENT DATE: 20250101
